FAERS Safety Report 6820295-4 (Version None)
Quarter: 2010Q3

REPORT INFORMATION
  Report Type: 
  Country: None (occurrence: None)
  Receive Date: 20100707
  Receipt Date: 20100702
  Transmission Date: 20110219
  Serious: Yes (Death, Other)
  Sender: FDA-Public Use
  Company Number: AU-CELGENEUS-008-20785-10070181

PATIENT

DRUGS (3)
  1. THALIDOMIDE [Suspect]
     Indication: MYELODYSPLASTIC SYNDROME
     Route: 048
  2. THALIDOMIDE [Suspect]
     Route: 048
  3. VIDAZA [Suspect]
     Indication: MYELODYSPLASTIC SYNDROME
     Route: 065

REACTIONS (14)
  - ABDOMINAL PAIN [None]
  - DISEASE PROGRESSION [None]
  - DRUG INEFFECTIVE [None]
  - HAEMORRHAGE INTRACRANIAL [None]
  - HYPOKALAEMIA [None]
  - INFECTION [None]
  - PAIN [None]
  - POST PROCEDURAL HAEMORRHAGE [None]
  - RENAL FAILURE [None]
  - RESPIRATORY DISORDER [None]
  - RESPIRATORY FAILURE [None]
  - SEPSIS [None]
  - SYNCOPE [None]
  - THROMBOSIS [None]
